FAERS Safety Report 10470277 (Version 2)
Quarter: 2014Q3

REPORT INFORMATION
  Report Type: Report from Study
  Country: IE (occurrence: IE)
  Receive Date: 20140923
  Receipt Date: 20140923
  Transmission Date: 20150326
  Serious: Yes (Death, Other)
  Sender: FDA-Public Use
  Company Number: IE-JNJFOC-20140823092

PATIENT
  Age: 6 Decade
  Sex: Female

DRUGS (1)
  1. IBRUTINIB [Suspect]
     Active Substance: IBRUTINIB
     Indication: CHRONIC LYMPHOCYTIC LEUKAEMIA
     Route: 048
     Dates: start: 20140720

REACTIONS (7)
  - White blood cell count increased [Unknown]
  - Dizziness [Unknown]
  - Death [Fatal]
  - Platelet count decreased [Unknown]
  - Brugada syndrome [Unknown]
  - Disease progression [Unknown]
  - Haemoglobin decreased [Unknown]

NARRATIVE: CASE EVENT DATE: 201408
